FAERS Safety Report 9913952 (Version 1)
Quarter: 2014Q1

REPORT INFORMATION
  Report Type: Spontaneous
  Country: US (occurrence: None)
  Receive Date: 20140219
  Receipt Date: 20140219
  Transmission Date: 20141002
  Serious: Yes (Hospitalization)
  Sender: FDA-Public Use
  Company Number: None

PATIENT
  Age: 61 Year
  Sex: Female
  Weight: 49.9 kg

DRUGS (2)
  1. NEULASTA [Suspect]
     Indication: WHITE BLOOD CELL COUNT DECREASED
     Route: 058
     Dates: start: 20131228
  2. NEULASTA [Suspect]
     Indication: CHEMOTHERAPY
     Route: 058
     Dates: start: 20131228

REACTIONS (8)
  - Influenza like illness [None]
  - Asthenia [None]
  - Nausea [None]
  - Headache [None]
  - Body temperature increased [None]
  - White blood cell count increased [None]
  - Metastases to pleura [None]
  - Pleural effusion [None]
